FAERS Safety Report 17900229 (Version 1)
Quarter: 2020Q2

REPORT INFORMATION
  Report Type: Spontaneous
  Country: IT (occurrence: IT)
  Receive Date: 20200616
  Receipt Date: 20200616
  Transmission Date: 20200714
  Serious: Yes (Other)
  Sender: FDA-Public Use
  Company Number: IT-TAKEDA-2020TEU005558

PATIENT
  Age: 65 Year
  Sex: Male

DRUGS (1)
  1. COLCHICINE. [Suspect]
     Active Substance: COLCHICINE
     Indication: FAMILIAL MEDITERRANEAN FEVER
     Dosage: 1 MILLIGRAM, QD
     Route: 065

REACTIONS (4)
  - Condition aggravated [Unknown]
  - Disease risk factor [Unknown]
  - Drug intolerance [Unknown]
  - Leukopenia [Unknown]
